FAERS Safety Report 6358557-X (Version None)
Quarter: 2009Q3

REPORT INFORMATION
  Report Type: 
  Country: None (occurrence: None)
  Receive Date: 20090914
  Receipt Date: 20090902
  Transmission Date: 20100115
  Serious: Yes (Other)
  Sender: FDA-Public Use
  Company Number: 2009010131

PATIENT
  Age: 41 Year
  Sex: Female
  Weight: 59.8748 kg

DRUGS (8)
  1. NUVIGIL [Suspect]
     Indication: NARCOLEPSY
     Dosage: 250 MG (250 MG, 1 IN 1 D), ORAL
     Route: 048
     Dates: start: 20090817, end: 20090901
  2. ELMIRON [Concomitant]
  3. ATARAX [Concomitant]
  4. VESICARE [Concomitant]
  5. AMITRIPTYLINE HYDROCHLORIDE [Concomitant]
  6. SIMVASTATIN [Concomitant]
  7. ZETIA [Concomitant]
  8. ZYRTEC [Concomitant]

REACTIONS (5)
  - DRY SKIN [None]
  - OROPHARYNGEAL PAIN [None]
  - PAIN [None]
  - RASH ERYTHEMATOUS [None]
  - RASH GENERALISED [None]
